FAERS Safety Report 7751833-5 (Version None)
Quarter: 2011Q3

REPORT INFORMATION
  Report Type: 
  Country: None (occurrence: None)
  Receive Date: 20110914
  Receipt Date: 20110914
  Transmission Date: 20111222
  Serious: Yes (Death, Hospitalization)
  Sender: FDA-Public Use
  Company Number: None

PATIENT
  Sex: Male
  Weight: 100.3 kg

DRUGS (2)
  1. CISPLATIN [Suspect]
     Dosage: 163 MG
     Dates: end: 20090630
  2. DOCETAXEL [Suspect]
     Dosage: 163 MG
     Dates: end: 20090630

REACTIONS (11)
  - ORAL CAVITY FISTULA [None]
  - URINE OUTPUT DECREASED [None]
  - NECK PAIN [None]
  - HAEMODIALYSIS [None]
  - FACIAL PAIN [None]
  - ABDOMINAL PAIN [None]
  - VOMITING [None]
  - NAUSEA [None]
  - RENAL FAILURE ACUTE [None]
  - HAEMORRHAGE [None]
  - SEPSIS [None]
